FAERS Safety Report 16542943 (Version 1)
Quarter: 2019Q3

REPORT INFORMATION
  Report Type: Spontaneous
  Country: JP (occurrence: JP)
  Receive Date: 20190709
  Receipt Date: 20190709
  Transmission Date: 20191004
  Serious: Yes (Hospitalization, Other)
  Sender: FDA-Public Use
  Company Number: JP-SA-2019SA175267

PATIENT
  Age: 58 Year
  Sex: Male

DRUGS (11)
  1. INSULIN LISPRO [Suspect]
     Active Substance: INSULIN LISPRO
     Indication: TYPE 2 DIABETES MELLITUS
     Dosage: UNK UNK, UNK
  2. MINOCYCLINE HYDROCHLORIDE. [Suspect]
     Active Substance: MINOCYCLINE HYDROCHLORIDE
     Dosage: 100 MG, QD
     Route: 048
  3. MINOCYCLINE HYDROCHLORIDE. [Suspect]
     Active Substance: MINOCYCLINE HYDROCHLORIDE
     Dosage: DOSES DECREASED
  4. VANCOMYCIN [Concomitant]
     Active Substance: VANCOMYCIN
     Indication: DIABETIC GANGRENE
     Dosage: 1 G, QD
     Route: 042
  5. CLINDAMYCIN. [Concomitant]
     Active Substance: CLINDAMYCIN
     Indication: DIABETIC GANGRENE
     Dosage: 1800 MG, QD
     Route: 042
  6. MINOCYCLINE HYDROCHLORIDE. [Suspect]
     Active Substance: MINOCYCLINE HYDROCHLORIDE
     Indication: DIABETIC GANGRENE
     Dosage: 100 MG, QD
     Route: 042
  7. INSULIN GLARGINE [Suspect]
     Active Substance: INSULIN GLARGINE
     Indication: TYPE 2 DIABETES MELLITUS
     Dosage: UNK UNK, QD
  8. VANCOMYCIN [Concomitant]
     Active Substance: VANCOMYCIN
     Dosage: DOSE DECREASED
     Route: 042
  9. CEFTRIAXONE. [Concomitant]
     Active Substance: CEFTRIAXONE
     Indication: DIABETIC GANGRENE
     Dosage: 1 G, QD
     Route: 042
  10. CLINDAMYCIN. [Concomitant]
     Active Substance: CLINDAMYCIN
     Dosage: DOSE DECREASED
     Route: 042
  11. CEFTRIAXONE. [Concomitant]
     Active Substance: CEFTRIAXONE
     Dosage: DOSE DECREASED
     Route: 042

REACTIONS (2)
  - Amyloidosis [Recovered/Resolved]
  - Necrosis [Recovered/Resolved]
